FAERS Safety Report 12957252 (Version 1)
Quarter: 2016Q4

REPORT INFORMATION
  Report Type: Spontaneous
  Country: DE (occurrence: DE)
  Receive Date: 20161118
  Receipt Date: 20161118
  Transmission Date: 20170207
  Serious: Yes (Other)
  Sender: FDA-Public Use
  Company Number: DE-TEVA-710383GER

PATIENT
  Age: 52 Year
  Sex: Male
  Weight: 98 kg

DRUGS (1)
  1. DIAZEPAM-RATIOPHARM 10 MG/2 ML INJEKTIONSLOESUNG [Suspect]
     Active Substance: DIAZEPAM
     Route: 042
     Dates: start: 20160713

REACTIONS (5)
  - Ventricular tachycardia [Recovered/Resolved]
  - Headache [Recovered/Resolved]
  - Ventricular extrasystoles [Recovered/Resolved]
  - Angina pectoris [Recovered/Resolved]
  - Cyanosis [Recovered/Resolved]

NARRATIVE: CASE EVENT DATE: 20160713
